FAERS Safety Report 8779396 (Version 2)
Quarter: 2012Q4

REPORT INFORMATION
  Report Type: 
  Country: DE (occurrence: DE)
  Receive Date: 20120912
  Receipt Date: 20121121
  Transmission Date: 20130627
  Serious: Yes (Hospitalization)
  Sender: FDA-Public Use
  Company Number: DE-UCBSA-065200

PATIENT
  Sex: Male

DRUGS (2)
  1. VIMPAT [Suspect]
     Dosage: 1-0-1
     Dates: start: 201202
  2. LAMOTRIGIN [Concomitant]
     Dosage: 1-0-1

REACTIONS (2)
  - Grand mal convulsion [Recovered/Resolved]
  - Convulsion [Recovered/Resolved]
